FAERS Safety Report 6693385-7 (Version None)
Quarter: 2010Q2

REPORT INFORMATION
  Report Type: 
  Country: None (occurrence: None)
  Receive Date: 20100420
  Receipt Date: 20100408
  Transmission Date: 20101027
  Serious: Yes (Hospitalization, Disabling)
  Sender: FDA-Public Use
  Company Number: 008576

PATIENT
  Age: 70 Year
  Sex: Female

DRUGS (2)
  1. CIMZIA [Suspect]
     Indication: RHEUMATOID ARTHRITIS
     Dosage: (SUBCUTANEOUS)
     Route: 058
     Dates: start: 20091201, end: 20100301
  2. METHOTREXATE [Concomitant]

REACTIONS (2)
  - ARTHRITIS BACTERIAL [None]
  - INVESTIGATION ABNORMAL [None]
